FAERS Safety Report 21085588 (Version 2)
Quarter: 2022Q3

REPORT INFORMATION
  Report Type: Spontaneous
  Country: US (occurrence: US)
  Receive Date: 20220715
  Receipt Date: 20220812
  Transmission Date: 20221027
  Serious: No
  Sender: FDA-Public Use
  Company Number: US-GSK-US2022AMR105603

PATIENT
  Age: 84 Year
  Sex: Female

DRUGS (1)
  1. FLUTICASONE PROPIONATE [Suspect]
     Active Substance: FLUTICASONE PROPIONATE
     Indication: Pneumonitis
     Dosage: 1 PUFF(S), BID (12G/120 METERED)
     Dates: start: 202207

REACTIONS (5)
  - Condition aggravated [Unknown]
  - Wrong technique in device usage process [Unknown]
  - Underdose [Unknown]
  - Off label use [Unknown]
  - Product complaint [Unknown]

NARRATIVE: CASE EVENT DATE: 20220701
